FAERS Safety Report 19614455 (Version 1)
Quarter: 2021Q3

REPORT INFORMATION
  Report Type: Spontaneous
  Country: DE (occurrence: DE)
  Receive Date: 20210727
  Receipt Date: 20210727
  Transmission Date: 20211014
  Serious: Yes (Hospitalization)
  Sender: FDA-Public Use
  Company Number: DE-TEVA-2021-DE-1936362

PATIENT
  Age: 49 Year
  Sex: Female

DRUGS (2)
  1. GLATIRAMER ACETATE. [Suspect]
     Active Substance: GLATIRAMER ACETATE
     Indication: RELAPSING-REMITTING MULTIPLE SCLEROSIS
     Dosage: 40MG THREE TIMES PER WEEK.
     Route: 065
  2. GLATIRAMER ACETATE. [Suspect]
     Active Substance: GLATIRAMER ACETATE
     Dosage: RE?EXPOSED TO GLATIRAMER ACETATE 40MG
     Route: 065

REACTIONS (1)
  - Meningitis aseptic [Recovered/Resolved]
